FAERS Safety Report 9069057 (Version 1)
Quarter: 2013Q1

REPORT INFORMATION
  Report Type: Spontaneous
  Country: US (occurrence: US)
  Receive Date: 20130215
  Receipt Date: 20130215
  Transmission Date: 20140127
  Serious: Yes (Other)
  Sender: FDA-Public Use
  Company Number: US-PFIZER INC-2013058353

PATIENT
  Age: 37 Year
  Sex: Male
  Weight: 86 kg

DRUGS (1)
  1. CHANTIX [Suspect]
     Indication: SMOKING CESSATION THERAPY
     Dosage: 0.5 MG, 1X/DAY (DAILY)
     Route: 048
     Dates: start: 20130204

REACTIONS (2)
  - Lip swelling [Unknown]
  - Swollen tongue [Unknown]
